FAERS Safety Report 4535091-0 (Version None)
Quarter: 2004Q4

REPORT INFORMATION
  Report Type: 
  Country: None (occurrence: None)
  Receive Date: 20041214
  Receipt Date: 20040916
  Transmission Date: 20050328
  Serious: No
  Sender: FDA-Public Use
  Company Number: 2004225795US

PATIENT
  Age: 73 Year
  Sex: Female
  Weight: 52.2 kg

DRUGS (10)
  1. BEXTRA [Suspect]
     Dosage: 20 MG, QD
     Dates: start: 20040717
  2. SYNTHROID [Concomitant]
  3. ZONEGRAN [Concomitant]
  4. VITAMIN E [Concomitant]
  5. PRILOSEC [Concomitant]
  6. CITRACAL (CALCIUM CITRATE) [Concomitant]
  7. GLUCOSAMINE [Concomitant]
  8. CLARITIN [Concomitant]
  9. BOTOX (BOTULINUM TOXIN TYPE A) [Concomitant]
  10. LACTAID (TILACTASE) [Concomitant]

REACTIONS (5)
  - DISSOCIATION [None]
  - DRUG INEFFECTIVE [None]
  - FATIGUE [None]
  - FLATULENCE [None]
  - VISION BLURRED [None]
